FAERS Safety Report 6195169-5 (Version None)
Quarter: 2009Q2

REPORT INFORMATION
  Report Type: 
  Country: None (occurrence: None)
  Receive Date: 20090519
  Receipt Date: 20080820
  Transmission Date: 20091009
  Serious: Yes (Other)
  Sender: FDA-Public Use
  Company Number: US-ASTRAZENECA-2009UW12316

PATIENT
  Age: 62 Year
  Sex: Female

DRUGS (8)
  1. TAMOXIFEN CITRATE [Suspect]
     Indication: BREAST CANCER
     Route: 048
     Dates: start: 20010101
  2. ATENOLOL [Concomitant]
     Route: 048
  3. PLAVIX [Concomitant]
     Route: 048
  4. ASPIRIN [Concomitant]
     Route: 048
  5. BONIVA [Concomitant]
     Route: 048
  6. TORSEMIDE [Concomitant]
  7. ZOCOR [Concomitant]
     Route: 048
  8. MULTI-VITAMIN [Concomitant]
     Route: 048

REACTIONS (2)
  - MYOCARDIAL INFARCTION [None]
  - NEUROPATHY PERIPHERAL [None]
